FAERS Safety Report 5029501-2 (Version None)
Quarter: 2006Q2

REPORT INFORMATION
  Report Type: 
  Country: None (occurrence: None)
  Receive Date: 20060620
  Receipt Date: 20050606
  Transmission Date: 20061013
  Serious: No
  Sender: FDA-Public Use
  Company Number: US-GLAXOSMITHKLINE-A0561398A

PATIENT
  Age: 32 Year
  Sex: Male

DRUGS (2)
  1. ZYBAN [Suspect]
     Route: 048
     Dates: start: 20000101
  2. PAXIL [Suspect]
     Route: 048
     Dates: start: 20000101

REACTIONS (2)
  - HYPOTENSION [None]
  - RASH PUSTULAR [None]
